FAERS Safety Report 7124359-X (Version None)
Quarter: 2010Q4

REPORT INFORMATION
  Report Type: 
  Country: None (occurrence: None)
  Receive Date: 20101126
  Receipt Date: 20101123
  Transmission Date: 20110411
  Serious: Yes (Hospitalization)
  Sender: FDA-Public Use
  Company Number: CHNY2010GB00512

PATIENT
  Age: 17 Year
  Sex: Male

DRUGS (1)
  1. PARACETAMOL (NCH) [Suspect]
     Dosage: 12 G
     Route: 048

REACTIONS (8)
  - ALANINE AMINOTRANSFERASE ABNORMAL [None]
  - BLOOD CREATININE ABNORMAL [None]
  - BLOOD UREA ABNORMAL [None]
  - HEPATOTOXICITY [None]
  - NEPHROPATHY TOXIC [None]
  - OVERDOSE [None]
  - PROTHROMBIN TIME RATIO ABNORMAL [None]
  - RENAL FAILURE ACUTE [None]
